FAERS Safety Report 5564587-8 (Version None)
Quarter: 2007Q4

REPORT INFORMATION
  Report Type: 
  Country: None (occurrence: None)
  Receive Date: 20071212
  Receipt Date: 20071130
  Transmission Date: 20080405
  Serious: Yes (Hospitalization)
  Sender: FDA-Public Use
  Company Number: E2090-00328-SPO-JP

PATIENT
  Age: 24 Year
  Sex: Male

DRUGS (20)
  1. ZONEGRAN [Suspect]
     Indication: EPILEPSY
     Dosage: 160 MG, ORAL; 200 MG, ORAL; 250 MG,ORAL; 200 MG, ORAL
     Route: 048
     Dates: end: 20051018
  2. ZONEGRAN [Suspect]
     Indication: EPILEPSY
     Dosage: 160 MG, ORAL; 200 MG, ORAL; 250 MG,ORAL; 200 MG, ORAL
     Route: 048
     Dates: start: 20051019, end: 20051129
  3. ZONEGRAN [Suspect]
     Indication: EPILEPSY
     Dosage: 160 MG, ORAL; 200 MG, ORAL; 250 MG,ORAL; 200 MG, ORAL
     Route: 048
     Dates: start: 20051130, end: 20060418
  4. ZONEGRAN [Suspect]
     Indication: EPILEPSY
     Dosage: 160 MG, ORAL; 200 MG, ORAL; 250 MG,ORAL; 200 MG, ORAL
     Route: 048
     Dates: start: 20060419, end: 20060926
  5. ZONEGRAN [Suspect]
     Indication: EPILEPSY
     Dosage: 160 MG, ORAL; 200 MG, ORAL; 250 MG,ORAL; 200 MG, ORAL
     Route: 048
     Dates: start: 20060927, end: 20061219
  6. ZONEGRAN [Suspect]
     Indication: EPILEPSY
     Dosage: 160 MG, ORAL; 200 MG, ORAL; 250 MG,ORAL; 200 MG, ORAL
     Route: 048
     Dates: start: 20061220, end: 20070117
  7. ZONEGRAN [Suspect]
     Indication: EPILEPSY
     Dosage: 160 MG, ORAL; 200 MG, ORAL; 250 MG,ORAL; 200 MG, ORAL
     Route: 048
     Dates: start: 20070121, end: 20070129
  8. TEGRETOL [Suspect]
     Indication: EPILEPSY
     Dosage: 200 MG, ORAL; 400 MG, ORAL; 500 MG, ORAL; 400 MG, ORAL
     Route: 048
     Dates: start: 20060719, end: 20060926
  9. TEGRETOL [Suspect]
     Indication: EPILEPSY
     Dosage: 200 MG, ORAL; 400 MG, ORAL; 500 MG, ORAL; 400 MG, ORAL
     Route: 048
     Dates: start: 20060927, end: 20070116
  10. TEGRETOL [Suspect]
     Indication: EPILEPSY
     Dosage: 200 MG, ORAL; 400 MG, ORAL; 500 MG, ORAL; 400 MG, ORAL
     Route: 048
     Dates: start: 20070117, end: 20070123
  11. TEGRETOL [Suspect]
     Indication: EPILEPSY
     Dosage: 200 MG, ORAL; 400 MG, ORAL; 500 MG, ORAL; 400 MG, ORAL
     Route: 048
     Dates: start: 20070124, end: 20070129
  12. RISPERIDONE [Concomitant]
  13. CLONAZEPAM [Concomitant]
  14. ALEVIATAN (PHENYTOIN) [Concomitant]
  15. NEULEPTL (PERICIAZINE) [Concomitant]
  16. SOLITA T (SOLITA T) [Concomitant]
  17. ATARAX [Concomitant]
  18. SOLDEM 3 (OSMOSAL) [Concomitant]
  19. MAC-AMIN (MAC AMIN) [Concomitant]
  20. MULTIVITAMIN ADDITIVE [Concomitant]

REACTIONS (8)
  - AGGRESSION [None]
  - BLOOD PRESSURE FLUCTUATION [None]
  - DIARRHOEA [None]
  - DYSPHAGIA [None]
  - HEART RATE IRREGULAR [None]
  - NEUROLEPTIC MALIGNANT SYNDROME [None]
  - SOMNOLENCE [None]
  - TORTICOLLIS [None]
